FAERS Safety Report 5251883-7 (Version None)
Quarter: 2007Q1

REPORT INFORMATION
  Report Type: 
  Country: None (occurrence: None)
  Receive Date: 20070223
  Receipt Date: 20070214
  Transmission Date: 20070707
  Serious: Yes (Other)
  Sender: FDA-Public Use
  Company Number: 2007SP002820

PATIENT
  Sex: Male

DRUGS (3)
  1. PEG-INTRON [Suspect]
     Indication: HEPATITIS C
     Dosage: ;SC
     Route: 058
     Dates: start: 20060701, end: 20070201
  2. REBETOL [Suspect]
     Indication: HEPATITIS C
     Dosage: PO, PO
     Route: 048
     Dates: end: 20070201
  3. REBETOL [Suspect]
     Indication: HEPATITIS C
     Dosage: PO, PO
     Route: 048
     Dates: start: 20060701

REACTIONS (3)
  - ANAEMIA [None]
  - PLEURAL EFFUSION [None]
  - PLEURISY [None]
